FAERS Safety Report 8485218 (Version 2)
Quarter: 2013Q2

REPORT INFORMATION
  Report Type: Spontaneous
  Country: US (occurrence: US)
  Receive Date: 20120315
  Receipt Date: 20130625
  Transmission Date: 20140414
  Serious: Yes (Other)
  Sender: FDA-Public Use
  Company Number: US-BAUSCH-2012BL000685

PATIENT
  Age: 45 Year
  Sex: Male

DRUGS (6)
  1. NEOMYCIN AND POLYMYXIN B SULFATES AND DEXAMETHASONE OPHTHALMIC SUSPENS [Suspect]
     Indication: EYE INFECTION
     Dosage: 1 DROP; EVERY 4 HOURS; RIGHT EYE
     Route: 047
     Dates: start: 20100325, end: 201203
  2. NEOMYCIN AND POLYMYXIN B SULFATES AND DEXAMETHASONE OPHTHALMIC SUSPENS [Suspect]
     Dosage: 1 DROP; EVERY NIGHT AT BEDTIME; OPHTHALMIC
     Route: 047
     Dates: start: 20100325, end: 201203
  3. DORZOLAMIDE [Concomitant]
     Indication: GLAUCOMA
  4. VIGAMOX [Concomitant]
  5. BACITRACIN ZINC [Concomitant]
  6. ATROPINE [Concomitant]

REACTIONS (7)
  - Endophthalmitis [Unknown]
  - Blepharitis [Unknown]
  - Retinal degeneration [Unknown]
  - Iridodonesis [Unknown]
  - Glaucoma [Unknown]
  - Hypersensitivity [Unknown]
  - Optic nerve injury [Unknown]
